FAERS Safety Report 16791182 (Version 1)
Quarter: 2019Q3

REPORT INFORMATION
  Report Type: Spontaneous
  Country: US (occurrence: US)
  Receive Date: 20190910
  Receipt Date: 20190910
  Transmission Date: 20191005
  Serious: No
  Sender: FDA-Public Use
  Company Number: US-PERRIGO-18US007984

PATIENT
  Age: 73 Year
  Sex: Female
  Weight: 63.49 kg

DRUGS (3)
  1. EVAMIST [Suspect]
     Active Substance: ESTRADIOL
     Indication: HOT FLUSH
     Dosage: 3.06 MG, QD
     Route: 061
     Dates: start: 2017, end: 201712
  2. EVAMIST [Suspect]
     Active Substance: ESTRADIOL
     Dosage: QUARTER SIZE SPRAYS, QD
     Route: 061
     Dates: start: 201712, end: 20180804
  3. EVAMIST [Suspect]
     Active Substance: ESTRADIOL
     Dosage: 3.06 MG, QD
     Route: 061
     Dates: start: 20180805

REACTIONS (1)
  - Underdose [Recovered/Resolved]

NARRATIVE: CASE EVENT DATE: 201712
